FAERS Safety Report 4788573-0 (Version None)
Quarter: 2005Q4

REPORT INFORMATION
  Report Type: 
  Country: None (occurrence: None)
  Receive Date: 20051005
  Receipt Date: 20051005
  Transmission Date: 20060501
  Serious: Yes (Life-Threatening, Hospitalization)
  Sender: FDA-Public Use
  Company Number: None

PATIENT
  Age: 70 Year
  Sex: Female

DRUGS (9)
  1. DIGOXIN [Suspect]
     Indication: ATRIAL FIBRILLATION
     Dosage: 0.25 MG PO QD
     Route: 048
  2. WARFARIN SODIUM [Concomitant]
  3. SPIRONOLACTONE [Concomitant]
  4. VENLAFAXINE [Concomitant]
  5. METOPROLOL [Concomitant]
  6. LANTUS [Concomitant]
  7. HUMALOG [Concomitant]
  8. HYDROCHLOROTHIAZIDE [Concomitant]
  9. ISOSORBIDE MONONITRATE [Concomitant]

REACTIONS (7)
  - ASTHENIA [None]
  - CARDIAC FAILURE CONGESTIVE [None]
  - CONDITION AGGRAVATED [None]
  - COUGH [None]
  - FATIGUE [None]
  - PYREXIA [None]
  - RESPIRATORY DISORDER [None]
